FAERS Safety Report 14879586 (Version 1)
Quarter: 2018Q2

REPORT INFORMATION
  Report Type: Spontaneous
  Country: US (occurrence: US)
  Receive Date: 20180511
  Receipt Date: 20180511
  Transmission Date: 20180711
  Serious: No
  Sender: FDA-Public Use
  Company Number: US-CELGENEUS-USA-20180501256

PATIENT
  Sex: Female

DRUGS (1)
  1. REVLIMID [Suspect]
     Active Substance: LENALIDOMIDE
     Indication: 5Q MINUS SYNDROME
     Dosage: 5 MILLIGRAM
     Route: 048
     Dates: start: 20180412

REACTIONS (5)
  - Contusion [Unknown]
  - Musculoskeletal chest pain [Unknown]
  - Throat tightness [Unknown]
  - Dysphagia [Unknown]
  - Cough [Unknown]

NARRATIVE: CASE EVENT DATE: 2018
